FAERS Safety Report 15327056 (Version 5)
Quarter: 2023Q2

REPORT INFORMATION
  Report Type: Report from Study
  Country: AU (occurrence: AU)
  Receive Date: 20180828
  Receipt Date: 20230630
  Transmission Date: 20230722
  Serious: Yes (Hospitalization)
  Sender: FDA-Public Use
  Company Number: AU-PFIZER INC-2018340493

PATIENT
  Age: 67 Year
  Sex: Male
  Weight: 132 kg

DRUGS (9)
  1. ENZALUTAMIDE [Suspect]
     Active Substance: ENZALUTAMIDE
     Indication: Prostate cancer
     Dosage: 160 MG, DAILY FOR 3 MONTHS
     Route: 048
     Dates: start: 20171222, end: 20180728
  2. TRANEXAMIC ACID [Suspect]
     Active Substance: TRANEXAMIC ACID
     Indication: Haematuria
     Dosage: 1 G, SINGLE (ONCE)
     Route: 048
     Dates: start: 20180728, end: 20180728
  3. HYGROTON [Concomitant]
     Active Substance: CHLORTHALIDONE
     Indication: Hypertension
     Dosage: 25 MG, 1X/DAY (QD)
     Route: 048
     Dates: start: 20170911
  4. AMLODIPINE [Concomitant]
     Active Substance: AMLODIPINE BESYLATE
     Indication: Hypertension
     Dosage: 10 MG, 1X/DAY
     Route: 048
     Dates: start: 20171006
  5. ASPIRIN [Concomitant]
     Active Substance: ASPIRIN
     Indication: Coronary artery bypass
     Dosage: 100 MG, 1X/DAY
     Route: 048
     Dates: start: 1999
  6. IMDUR [Concomitant]
     Active Substance: ISOSORBIDE MONONITRATE
     Indication: Coronary artery bypass
     Dosage: 60 MG, 1X/DAY
     Route: 048
     Dates: start: 20171206
  7. METOPROLOL [Concomitant]
     Active Substance: METOPROLOL
     Indication: Hypertension
     Dosage: 50 MG, 2X/DAY (BD)
     Route: 048
     Dates: start: 20170911
  8. ZINOPRIL [LISINOPRIL] [Concomitant]
     Indication: Hypertension
     Dosage: 20 MG, 2X/DAY
     Route: 048
     Dates: start: 20171206
  9. PLAVIX [Concomitant]
     Active Substance: CLOPIDOGREL BISULFATE
     Indication: Coronary artery bypass
     Dosage: 75 MG, UNK
     Route: 048
     Dates: start: 20171206

REACTIONS (2)
  - Acute myocardial infarction [Recovered/Resolved]
  - Haematuria [Recovered/Resolved]

NARRATIVE: CASE EVENT DATE: 20180726
